FAERS Safety Report 8905903 (Version 2)
Quarter: 2012Q4

REPORT INFORMATION
  Report Type: 
  Country: US (occurrence: US)
  Receive Date: 20121112
  Receipt Date: 20121212
  Transmission Date: 20130627
  Serious: No
  Sender: FDA-Public Use
  Company Number: US-PFIZER INC-2012281066

PATIENT
  Age: 61 Year
  Sex: Female

DRUGS (7)
  1. NEURONTIN [Suspect]
     Dosage: UNK
  2. LYRICA [Suspect]
     Indication: PARAESTHESIA
     Dosage: 100 mg, 3x/day
  3. LYRICA [Suspect]
     Indication: NERVE PAIN
  4. HYDROCHLOROTHIAZIDE/TRIAMTERENE [Concomitant]
     Dosage: 37.5 mg-25 mg
  5. RESTASIS [Concomitant]
     Dosage: (.05)
  6. CETIRIZINE [Concomitant]
     Dosage: 10 mg, UNK
  7. AVONEX [Concomitant]
     Dosage: 30 ug, UNK
     Route: 030

REACTIONS (1)
  - Dry mouth [Unknown]
